FAERS Safety Report 12520290 (Version 2)
Quarter: 2016Q3

REPORT INFORMATION
  Report Type: Spontaneous
  Country: JP (occurrence: JP)
  Receive Date: 20160701
  Receipt Date: 20160708
  Transmission Date: 20161109
  Serious: Yes (Other)
  Sender: FDA-Public Use
  Company Number: JP-UCBSA-2016024172

PATIENT
  Age: 82 Year
  Sex: Female

DRUGS (1)
  1. E KEPPRA [Suspect]
     Active Substance: LEVETIRACETAM
     Indication: EPILEPSY
     Dosage: 750 MG DAILY
     Route: 048

REACTIONS (3)
  - Delirium [Not Recovered/Not Resolved]
  - Affect lability [Unknown]
  - Anger [Unknown]

NARRATIVE: CASE EVENT DATE: 20160623
